FAERS Safety Report 15866850 (Version 1)
Quarter: 2019Q1

REPORT INFORMATION
  Report Type: Spontaneous
  Country: US (occurrence: US)
  Receive Date: 20190124
  Receipt Date: 20190124
  Transmission Date: 20190417
  Serious: Yes (Disabling)
  Sender: FDA-Public Use
  Company Number: None

PATIENT
  Age: 66 Year
  Sex: Female
  Weight: 45 kg

DRUGS (1)
  1. PROLIA [Suspect]
     Active Substance: DENOSUMAB
     Indication: BONE LOSS
     Dosage: ?          OTHER STRENGTH:1 SHOT;QUANTITY:1 INJECTION(S);OTHER FREQUENCY:6 MONTHS;?
     Route: 030
     Dates: start: 20150615, end: 20150615

REACTIONS (9)
  - Diarrhoea [None]
  - Impaired healing [None]
  - Jaw disorder [None]
  - Tooth disorder [None]
  - Bone sarcoma [None]
  - Pain [None]
  - Dizziness [None]
  - Root canal infection [None]
  - Anxiety [None]

NARRATIVE: CASE EVENT DATE: 20150615
